FAERS Safety Report 5513491-X (Version None)
Quarter: 2007Q4

REPORT INFORMATION
  Report Type: 
  Country: None (occurrence: None)
  Receive Date: 20071112
  Receipt Date: 20071031
  Transmission Date: 20080405
  Serious: Yes (Other)
  Sender: FDA-Public Use
  Company Number: US-PFIZER INC-2007093447

PATIENT
  Sex: Female

DRUGS (2)
  1. CHANTIX [Suspect]
     Indication: SMOKING CESSATION THERAPY
     Route: 048
     Dates: start: 20071014, end: 20071031
  2. ORAL CONTRACEPTIVE NOS [Concomitant]

REACTIONS (6)
  - CATATONIA [None]
  - HOMICIDAL IDEATION [None]
  - LOSS OF CONSCIOUSNESS [None]
  - MOOD SWINGS [None]
  - SUICIDAL IDEATION [None]
  - VIOLENCE-RELATED SYMPTOM [None]
